FAERS Safety Report 5503071-4 (Version None)
Quarter: 2007Q4

REPORT INFORMATION
  Report Type: 
  Country: None (occurrence: None)
  Receive Date: 20071029
  Receipt Date: 20071029
  Transmission Date: 20080405
  Serious: Yes (Other)
  Sender: FDA-Public Use
  Company Number: None

PATIENT
  Age: 51 Year
  Sex: Female
  Weight: 90.7194 kg

DRUGS (1)
  1. LYRICA [Suspect]
     Indication: FIBROMYALGIA
     Dosage: 1 AT NIGHT 1 PO
     Route: 048
     Dates: start: 20070912, end: 20070916

REACTIONS (7)
  - BALANCE DISORDER [None]
  - GAIT DISTURBANCE [None]
  - PAIN [None]
  - PHARMACEUTICAL PRODUCT COMPLAINT [None]
  - PRURITUS [None]
  - VISION BLURRED [None]
  - VISUAL DISTURBANCE [None]
